FAERS Safety Report 6273968-9 (Version None)
Quarter: 2009Q3

REPORT INFORMATION
  Report Type: 
  Country: None (occurrence: None)
  Receive Date: 20090715
  Receipt Date: 20090630
  Transmission Date: 20100115
  Serious: Yes (Hospitalization, Other)
  Sender: FDA-Public Use
  Company Number: 2009S1011582

PATIENT
  Age: 11 Year
  Sex: Male

DRUGS (5)
  1. LEVETIRACETAM [Suspect]
     Indication: DRUG USE FOR UNKNOWN INDICATION
     Dosage: 1500 MG; DAILY
  2. OXCARBAZEPINE [Suspect]
     Indication: DRUG USE FOR UNKNOWN INDICATION
     Dosage: 2400 MG; DAILY
  3. CLOBAZAM (CLOBAZAM) [Suspect]
     Indication: DRUG USE FOR UNKNOWN INDICATION
     Dosage: 20 MG; DAILY
  4. RUFINAMIDE (RUFINAMIDE) [Suspect]
     Indication: DROP ATTACKS
     Dosage: 1200 MG; DAILY ORAL, 600 MG; ORAL; TWICE A DAY, 800 MG; ORAL; TWICE A DAY
     Route: 048
  5. RUFINAMIDE (RUFINAMIDE) [Suspect]
     Indication: LEARNING DISABILITY
     Dosage: 1200 MG; DAILY ORAL, 600 MG; ORAL; TWICE A DAY, 800 MG; ORAL; TWICE A DAY
     Route: 048

REACTIONS (3)
  - ABNORMAL BEHAVIOUR [None]
  - AGGRESSION [None]
  - DRUG INTERACTION [None]
